FAERS Safety Report 20069405 (Version 1)
Quarter: 2021Q4

REPORT INFORMATION
  Report Type: Spontaneous
  Country: US (occurrence: None)
  Receive Date: 20211112
  Receipt Date: 20211112
  Transmission Date: 20220304
  Serious: Yes (Hospitalization)
  Sender: FDA-Public Use
  Company Number: None

PATIENT
  Sex: Male

DRUGS (19)
  1. ESBRIET [Suspect]
     Active Substance: PIRFENIDONE
  2. ASPIRIN\SALICYLIC ACID [Suspect]
     Active Substance: ASPIRIN\SALICYLIC ACID
  3. CALCIUM/D3 [Concomitant]
  4. DORZOLAMIDE SOL [Concomitant]
  5. ESBRIET [Concomitant]
  6. FISH OIL CAP [Concomitant]
  7. FLONASE [Concomitant]
  8. FUROSEMIDE TAB [Concomitant]
  9. GABAPENTIN [Concomitant]
     Active Substance: GABAPENTIN
  10. GLIPIZIDE TAB [Concomitant]
  11. GLUCOSAMINE CAP [Concomitant]
  12. LATANOPROST SOL [Concomitant]
  13. LOSARTAN POT TAB [Concomitant]
  14. METFORMIN TAB [Concomitant]
  15. RANITIDINE TAB [Concomitant]
  16. ROSUVASTATIN TAB [Concomitant]
  17. STOOL SOFTNER CAP [Concomitant]
  18. VITAMIN D3 [Concomitant]
     Active Substance: CHOLECALCIFEROL
  19. ZYRTEC ALLGY TAB [Concomitant]

REACTIONS (2)
  - Hospitalisation [None]
  - Therapy interrupted [None]
